FAERS Safety Report 5575250-1 (Version None)
Quarter: 2007Q4

REPORT INFORMATION
  Report Type: 
  Country: None (occurrence: None)
  Receive Date: 20071221
  Receipt Date: 20071205
  Transmission Date: 20080405
  Serious: Yes (Life-Threatening)
  Sender: FDA-Public Use
  Company Number: 8025083

PATIENT
  Sex: Female
  Weight: 2.69 kg

DRUGS (4)
  1. KEPPRA [Suspect]
     Indication: CONVULSION
     Dosage: 3000 MG /D TRP
     Route: 064
     Dates: start: 20061207, end: 20070528
  2. KEPPRA [Suspect]
     Indication: CONVULSION
     Dosage: 1500 MG/D TRP
     Route: 064
     Dates: start: 20070529, end: 20070802
  3. PRENATAL VITAMINS [Concomitant]
  4. KEPPRA [Suspect]
     Indication: CONVULSION
     Dosage: TRP
     Route: 064

REACTIONS (7)
  - ACOUSTIC STIMULATION TESTS ABNORMAL [None]
  - BRONCHITIS [None]
  - DRUG EXPOSURE DURING PREGNANCY [None]
  - JAUNDICE NEONATAL [None]
  - PREMATURE BABY [None]
  - PULMONARY ARTERY STENOSIS CONGENITAL [None]
  - SMALL FOR DATES BABY [None]
